FAERS Safety Report 6978671-5 (Version None)
Quarter: 2010Q3

REPORT INFORMATION
  Report Type: 
  Country: None (occurrence: None)
  Receive Date: 20100913
  Receipt Date: 20100907
  Transmission Date: 20110219
  Serious: Yes (Other)
  Sender: FDA-Public Use
  Company Number: A0870262A

PATIENT
  Sex: Female

DRUGS (8)
  1. COREG [Suspect]
     Dates: start: 20100504
  2. DIGOXIN [Suspect]
     Indication: PRODUCT USED FOR UNKNOWN INDICATION
  3. BEVACIZUMAB [Suspect]
     Indication: MALIGNANT MEDIASTINAL NEOPLASM
     Dosage: 420MG EVERY TWO WEEKS
     Route: 042
     Dates: start: 20100404
  4. SUTENT [Suspect]
     Indication: MALIGNANT MEDIASTINAL NEOPLASM
     Route: 065
  5. AMITRIPTYLINE HCL [Concomitant]
  6. PERINDOPRIL ERBUMINE [Concomitant]
  7. CLINDAMYCIN [Concomitant]
     Dates: start: 20100615
  8. VALSARTAN [Concomitant]

REACTIONS (12)
  - COUGH [None]
  - DIZZINESS [None]
  - DYSPHONIA [None]
  - DYSPNOEA [None]
  - HYPERSOMNIA [None]
  - INFLUENZA [None]
  - NAUSEA [None]
  - PARAESTHESIA [None]
  - PLATELET COUNT DECREASED [None]
  - POLLAKIURIA [None]
  - VOMITING [None]
  - WEIGHT DECREASED [None]
